FAERS Safety Report 8185102 (Version 3)
Quarter: 2013Q4

REPORT INFORMATION
  Report Type: Spontaneous
  Country: US (occurrence: US)
  Receive Date: 20111018
  Receipt Date: 20131015
  Transmission Date: 20140711
  Serious: Yes (Hospitalization, Other)
  Sender: FDA-Public Use
  Company Number: US-ASTRAZENECA-2011SE34768

PATIENT
  Age: 651 Month
  Sex: Male
  Weight: 92.5 kg

DRUGS (11)
  1. SYMBICORT PMDI [Suspect]
     Indication: CHRONIC OBSTRUCTIVE PULMONARY DISEASE
     Dosage: 2 PUFFS BID
     Route: 055
     Dates: start: 2005
  2. NEXIUM [Suspect]
     Indication: GASTROOESOPHAGEAL REFLUX DISEASE
     Route: 048
     Dates: start: 2010, end: 20131006
  3. MAGNESIUM [Concomitant]
     Route: 048
  4. ASARTOSTATIN [Concomitant]
     Indication: BLOOD CHOLESTEROL ABNORMAL
     Route: 048
  5. SPIRIVA [Concomitant]
     Indication: CHRONIC OBSTRUCTIVE PULMONARY DISEASE
     Route: 055
  6. SINGULAIR [Concomitant]
     Route: 048
  7. FLUTICASANOLE [Concomitant]
     Route: 045
  8. PROBIOTICS [Concomitant]
     Route: 048
  9. FISH OIL [Concomitant]
     Route: 048
  10. VITAMIN A D [Concomitant]
     Route: 048
  11. OXYCONTIN [Concomitant]
     Indication: PAIN
     Route: 048

REACTIONS (6)
  - Cerebrovascular accident [Unknown]
  - Lung infection [Unknown]
  - Pneumonia [Unknown]
  - Nerve compression [Unknown]
  - Diabetes mellitus [Unknown]
  - Drug dose omission [Unknown]
